FAERS Safety Report 5383728-9 (Version None)
Quarter: 2007Q3

REPORT INFORMATION
  Report Type: 
  Country: None (occurrence: None)
  Receive Date: 20070711
  Receipt Date: 20070629
  Transmission Date: 20080115
  Serious: Yes (Other)
  Sender: FDA-Public Use
  Company Number: PHBS2007FR11089

PATIENT
  Age: 54 Year
  Sex: Male

DRUGS (3)
  1. CYCLOSPORINE [Suspect]
     Indication: STEM CELL TRANSPLANT
     Route: 065
  2. MYCOPHENOLIC ACID [Suspect]
     Indication: STEM CELL TRANSPLANT
     Route: 065
  3. TACROLIMUS [Suspect]
     Indication: STEM CELL TRANSPLANT

REACTIONS (5)
  - BALANCE DISORDER [None]
  - CEREBELLAR ATAXIA [None]
  - GAIT DISTURBANCE [None]
  - NEUROTOXICITY [None]
  - TREMOR [None]
